FAERS Safety Report 8908572 (Version 1)
Quarter: 2012Q4

REPORT INFORMATION
  Report Type: 
  Country: IT (occurrence: IT)
  Receive Date: 20121114
  Receipt Date: 20121114
  Transmission Date: 20130627
  Serious: Yes (Life-Threatening, Hospitalization)
  Sender: FDA-Public Use
  Company Number: IT-ROCHE-1155051

PATIENT
  Age: 63 Year
  Sex: Male

DRUGS (3)
  1. ROCEFIN [Suspect]
     Indication: BRONCHITIS
     Route: 030
     Dates: start: 20111026, end: 20111028
  2. PRITOR [Concomitant]
     Route: 048
  3. METFORMIN [Concomitant]
     Route: 048

REACTIONS (3)
  - Dyspnoea [Recovered/Resolved]
  - Pharyngeal oedema [Recovered/Resolved]
  - Urticaria [Recovered/Resolved]
